FAERS Safety Report 7375192-5 (Version None)
Quarter: 2011Q1

REPORT INFORMATION
  Report Type: 
  Country: None (occurrence: None)
  Receive Date: 20110315
  Receipt Date: 20110302
  Transmission Date: 20110831
  Serious: Yes (Hospitalization, Other)
  Sender: FDA-Public Use
  Company Number: 028521

PATIENT
  Sex: Female
  Weight: 77.1115 kg

DRUGS (6)
  1. NORCO [Concomitant]
  2. ALPRAZOLAM [Concomitant]
  3. ZOFRAN [Concomitant]
  4. CIMZIA [Suspect]
     Indication: CROHN'S DISEASE
     Dosage: (SUBCUTANEOUS)  (200 MG 1X/2 WEEKS SUBCUTANEOUS)
     Route: 058
     Dates: start: 20100201, end: 20101101
  5. CIMZIA [Suspect]
     Indication: CROHN'S DISEASE
     Dosage: (SUBCUTANEOUS)  (200 MG 1X/2 WEEKS SUBCUTANEOUS)
     Route: 058
     Dates: start: 20090401
  6. CELEXA [Concomitant]

REACTIONS (4)
  - DIARRHOEA [None]
  - CONJUNCTIVITIS [None]
  - TOXICITY TO VARIOUS AGENTS [None]
  - EXFOLIATIVE RASH [None]
